FAERS Safety Report 5991495-0 (Version None)
Quarter: 2008Q4

REPORT INFORMATION
  Report Type: 
  Country: None (occurrence: None)
  Receive Date: 20081202
  Receipt Date: 20071220
  Transmission Date: 20090506
  Serious: Yes (Other)
  Sender: FDA-Public Use
  Company Number: WAES 0712USA08353

PATIENT
  Age: 51 Year
  Sex: Female

DRUGS (4)
  1. FOSAMAX [Suspect]
     Indication: OSTEOPOROSIS
     Dosage: 70 MG/PO
     Route: 048
     Dates: start: 20070101, end: 20080301
  2. LIPITOR [Concomitant]
  3. ZYRTEC [Concomitant]
  4. [THERAPY UNSPECIFIED] [Concomitant]

REACTIONS (3)
  - ANXIETY [None]
  - DEPRESSION [None]
  - OSTEONECROSIS [None]
